FAERS Safety Report 22676590 (Version 2)
Quarter: 2024Q2

REPORT INFORMATION
  Report Type: Report from Study
  Country: US (occurrence: US)
  Receive Date: 20230706
  Receipt Date: 20240620
  Transmission Date: 20240716
  Serious: Yes (Hospitalization)
  Sender: FDA-Public Use
  Company Number: US-JAZZ PHARMACEUTICALS-202107USGW03352

PATIENT

DRUGS (13)
  1. EPIDIOLEX [Suspect]
     Active Substance: CANNABIDIOL
     Indication: Epilepsy
     Dosage: 4.62 MG/KG/DAY  50 MICROGRAM, BID
     Dates: start: 2021, end: 2021
  2. EPIDIOLEX [Suspect]
     Active Substance: CANNABIDIOL
     Indication: Tuberous sclerosis complex
     Dosage: 9.25 MG/KG/DAY 100 MICROGRAM, BID
     Route: 048
     Dates: start: 2021
  3. EPIDIOLEX [Suspect]
     Active Substance: CANNABIDIOL
     Dosage: 4.62 MG/KG/DAY  50 MILLIGRAM, BID
     Route: 048
     Dates: start: 2021
  4. EPIDIOLEX [Suspect]
     Active Substance: CANNABIDIOL
     Dosage: 9.25 MG/KG/DAY 100 MILLIGRAM
     Dates: start: 2021
  5. EPIDIOLEX [Suspect]
     Active Substance: CANNABIDIOL
     Dosage: 2 ML FIRST DOSE AND 1.5 ML SECOND DOSE
     Route: 048
  6. EPIDIOLEX [Suspect]
     Active Substance: CANNABIDIOL
     Dosage: 4.62 MG/KG/DAY  50 MICROGRAM, BID
     Dates: start: 2021, end: 2021
  7. EPIDIOLEX [Suspect]
     Active Substance: CANNABIDIOL
     Dosage: 9.25 MG/KG/DAY 100 MICROGRAM, BID
     Route: 048
     Dates: start: 2021
  8. EPIDIOLEX [Suspect]
     Active Substance: CANNABIDIOL
     Dosage: 4.62 MG/KG/DAY  50 MILLIGRAM, BID
     Route: 048
     Dates: start: 2021
  9. EPIDIOLEX [Suspect]
     Active Substance: CANNABIDIOL
     Dosage: 9.25 MG/KG/DAY 100 MILLIGRAM
     Dates: start: 2021
  10. EPIDIOLEX [Suspect]
     Active Substance: CANNABIDIOL
     Dosage: 2 ML FIRST DOSE AND 1.5 ML SECOND DOSE
     Route: 048
  11. EPIDIOLEX [Suspect]
     Active Substance: CANNABIDIOL
     Dosage: 2 MILLILITER, BID VIA G-TUBE
  12. VIGABATRIN [Concomitant]
     Active Substance: VIGABATRIN
     Indication: Epilepsy
     Dosage: 100 MILLIGRAM
     Dates: start: 20210603
  13. VIGABATRIN [Concomitant]
     Active Substance: VIGABATRIN
     Dosage: 1000 MILLIGRAM, BID

REACTIONS (3)
  - Hospitalisation [Unknown]
  - Hospitalisation [Not Recovered/Not Resolved]
  - Product supply issue [Unknown]

NARRATIVE: CASE EVENT DATE: 20210101
